FAERS Safety Report 24835505 (Version 5)
Quarter: 2025Q3

REPORT INFORMATION
  Report Type: Report from Study
  Country: US (occurrence: US)
  Receive Date: 20250113
  Receipt Date: 20250808
  Transmission Date: 20251020
  Serious: Yes (Other)
  Sender: ABBVIE
  Company Number: US-ABBVIE-6076315

PATIENT
  Sex: Female

DRUGS (1)
  1. SKYRIZI [Suspect]
     Active Substance: RISANKIZUMAB-RZAA
     Indication: Crohn^s disease
     Route: 058

REACTIONS (9)
  - Coronary artery occlusion [Unknown]
  - Stoma site reaction [Unknown]
  - Stomal hernia [Unknown]
  - Cardiac failure congestive [Unknown]
  - Tooth abscess [Unknown]
  - Hernia pain [Unknown]
  - Stoma creation [Unknown]
  - Fistula [Unknown]
  - Weight increased [Unknown]
